FAERS Safety Report 4563647-8 (Version None)
Quarter: 2005Q1

REPORT INFORMATION
  Report Type: 
  Country: None (occurrence: None)
  Receive Date: 20050124
  Receipt Date: 20050110
  Transmission Date: 20050727
  Serious: Yes (Disabling)
  Sender: FDA-Public Use
  Company Number: SGBI-2004-00399

PATIENT
  Sex: Male

DRUGS (3)
  1. AGRYLIN [Suspect]
     Indication: ESSENTIAL THROMBOCYTHAEMIA
     Dosage: 0.5 MG, 3XDAY: TID, ORAL
     Route: 048
     Dates: start: 19981228, end: 19990924
  2. ACETYLSALICYLIC ACID SRT [Concomitant]
  3. INTRON A [Concomitant]

REACTIONS (1)
  - ERECTILE DYSFUNCTION [None]
